FAERS Safety Report 6828684-9 (Version None)
Quarter: 2010Q3

REPORT INFORMATION
  Report Type: 
  Country: None (occurrence: None)
  Receive Date: 20100706
  Receipt Date: 20100621
  Transmission Date: 20110219
  Serious: Yes (Other)
  Sender: FDA-Public Use
  Company Number: PHHY2010TR34021

PATIENT
  Age: 56 Year
  Sex: Female

DRUGS (2)
  1. VISUDYNE [Suspect]
     Indication: CHOROIDAL NEOVASCULARISATION
     Dosage: 5.25 ML ONCE IV
     Route: 042
     Dates: start: 20100524, end: 20100524
  2. BEVACIZUMAB [Concomitant]

REACTIONS (4)
  - EYE IRRITATION [None]
  - EYE PAIN [None]
  - RETINAL OEDEMA [None]
  - VISUAL ACUITY REDUCED [None]
